FAERS Safety Report 4667334-7 (Version None)
Quarter: 2005Q2

REPORT INFORMATION
  Report Type: 
  Country: None (occurrence: None)
  Receive Date: 20050519
  Receipt Date: 20050519
  Transmission Date: 20051028
  Serious: Yes (Disabling, Congenital Anomaly, Other)
  Sender: FDA-Public Use
  Company Number: None

PATIENT
  Sex: Female

DRUGS (3)
  1. DEPAKOTE [Suspect]
     Indication: CONVULSION
     Dosage: 1 PO   QID
     Route: 048
     Dates: start: 19940101
  2. DEPAKOTE [Suspect]
     Indication: MENTAL RETARDATION SEVERITY UNSPECIFIED
     Dosage: 1 PO   QID
     Route: 048
     Dates: start: 19940101
  3. TEGRETOL [Suspect]
     Indication: ANXIETY
     Dosage: 1  PO QID
     Route: 048
     Dates: start: 19940101

REACTIONS (1)
  - PHARMACEUTICAL PRODUCT COMPLAINT [None]
